FAERS Safety Report 11774107 (Version 1)
Quarter: 2015Q4

REPORT INFORMATION
  Report Type: Spontaneous
  Country: UA (occurrence: UA)
  Receive Date: 20151124
  Receipt Date: 20151124
  Transmission Date: 20160304
  Serious: Yes (Life-Threatening, Other)
  Sender: FDA-Public Use
  Company Number: UA-ASTRAZENECA-2015SF12043

PATIENT
  Age: 78 Year
  Sex: Male

DRUGS (2)
  1. ASA [Concomitant]
     Active Substance: ASPIRIN
  2. BRILINTA [Suspect]
     Active Substance: TICAGRELOR
     Indication: ACUTE MYOCARDIAL INFARCTION
     Route: 048
     Dates: start: 20151029, end: 20151103

REACTIONS (4)
  - Vascular stent thrombosis [Recovered/Resolved]
  - Therapy cessation [Unknown]
  - Epistaxis [Recovered/Resolved]
  - Acute coronary syndrome [Recovered/Resolved]

NARRATIVE: CASE EVENT DATE: 20151104
